FAERS Safety Report 8450830-4 (Version None)
Quarter: 2012Q2

REPORT INFORMATION
  Report Type: 
  Country: None (occurrence: None)
  Receive Date: 20120615
  Receipt Date: 20120615
  Transmission Date: 20120825
  Serious: Yes (Hospitalization)
  Sender: FDA-Public Use
  Company Number: None

PATIENT
  Sex: Male
  Weight: 86.18 kg

DRUGS (1)
  1. CISPLATIN [Suspect]
     Dosage: 188 MG

REACTIONS (5)
  - EATING DISORDER [None]
  - FLUID INTAKE REDUCED [None]
  - COUGH [None]
  - WEIGHT DECREASED [None]
  - VOMITING [None]
